FAERS Safety Report 11441708 (Version 3)
Quarter: 2015Q3

REPORT INFORMATION
  Report Type: Spontaneous
  Country: FR (occurrence: FR)
  Receive Date: 20150901
  Receipt Date: 20150921
  Transmission Date: 20151125
  Serious: Yes (Hospitalization)
  Sender: FDA-Public Use
  Company Number: FR-PFIZER INC-2015287746

PATIENT
  Age: 65 Year
  Sex: Male

DRUGS (14)
  1. FRAGMINE [Concomitant]
     Active Substance: DALTEPARIN SODIUM
     Dosage: 5000 IU, DAILY
  2. PARACETAMOL [Concomitant]
     Active Substance: ACETAMINOPHEN
     Dosage: 1 G, 3X/DAY
  3. TOPALGIC [Concomitant]
     Active Substance: TRAMADOL
     Dosage: 150 MG, 2X/DAY
  4. CEFTRIAXONE SODIUM. [Suspect]
     Active Substance: CEFTRIAXONE SODIUM
     Dosage: 1500 MG, 2X/DAY
     Route: 042
     Dates: start: 20150506, end: 20150527
  5. INEXIUM [Suspect]
     Active Substance: ESOMEPRAZOLE
     Dosage: 40 MG, 1X/DAY
     Route: 048
     Dates: end: 20150527
  6. COLCHICINE. [Suspect]
     Active Substance: COLCHICINE
     Indication: CHONDROCALCINOSIS
     Dosage: UNK
     Route: 048
     Dates: start: 20150517, end: 20150527
  7. GENTALLINE [Concomitant]
     Active Substance: GENTAMICIN SULFATE
     Dosage: 220 MG, DAILY
     Dates: end: 20150508
  8. RIVOTRIL [Concomitant]
     Active Substance: CLONAZEPAM
     Indication: PHANTOM PAIN
     Dosage: UNK
     Dates: start: 20150506
  9. BI-TILDIEM [Concomitant]
     Active Substance: DILTIAZEM
     Dosage: 120 MG, 2X/DAY
     Dates: end: 20150527
  10. LYRICA [Suspect]
     Active Substance: PREGABALIN
     Indication: PHANTOM PAIN
     Dosage: 25 MG, 2X/DAY
     Route: 048
     Dates: start: 20150506, end: 20150527
  11. OXYNORM [Concomitant]
     Active Substance: OXYCODONE HYDROCHLORIDE
     Indication: PHANTOM PAIN
     Dosage: UNK
     Dates: start: 20150506
  12. FENOFIBRATE. [Suspect]
     Active Substance: FENOFIBRATE
     Dosage: 1 DF, 1X/DAY
     Route: 048
     Dates: end: 20150527
  13. OGAST [Concomitant]
     Active Substance: LANSOPRAZOLE
     Dosage: 30 MG, DAILY
  14. KARDEGIC [Concomitant]
     Active Substance: ASPIRIN LYSINE
     Dosage: 75 MG, DAILY
     Dates: end: 20150527

REACTIONS (2)
  - Chondrocalcinosis [Unknown]
  - Neutropenia [Recovered/Resolved]

NARRATIVE: CASE EVENT DATE: 20150517
